FAERS Safety Report 24850223 (Version 1)
Quarter: 2025Q1

REPORT INFORMATION
  Report Type: Spontaneous
  Country: US (occurrence: US)
  Receive Date: 20250116
  Receipt Date: 20250116
  Transmission Date: 20250408
  Serious: No
  Sender: MERCK
  Company Number: US-009507513-2412USA006314

PATIENT
  Age: 74 Year
  Sex: Male
  Weight: 88.435 kg

DRUGS (18)
  1. WINREVAIR [Suspect]
     Active Substance: SOTATERCEPT-CSRK
     Indication: Product used for unknown indication
  2. TYVASO [Suspect]
     Active Substance: TREPROSTINIL
     Indication: Pulmonary arterial hypertension
     Dosage: 60 MICROGRAM, QID
  3. TYVASO [Suspect]
     Active Substance: TREPROSTINIL
     Dates: start: 20230213
  4. ROSUVASTATIN CALCIUM [Concomitant]
     Active Substance: ROSUVASTATIN CALCIUM
  5. EZETIMIBE [Concomitant]
     Active Substance: EZETIMIBE
  6. LOSARTAN POTASSIUM [Concomitant]
     Active Substance: LOSARTAN POTASSIUM
  7. AMLODIPINE BESYLATE [Concomitant]
     Active Substance: AMLODIPINE BESYLATE
  8. PANTOPRAZOLE SODIUM [Concomitant]
     Active Substance: PANTOPRAZOLE SODIUM
  9. VITAMIN D3 [Concomitant]
     Active Substance: CHOLECALCIFEROL
  10. ELIQUIS [Concomitant]
     Active Substance: APIXABAN
  11. FENOFIBRATE [Concomitant]
     Active Substance: FENOFIBRATE
  12. ALBUTEROL SULFATE [Concomitant]
     Active Substance: ALBUTEROL SULFATE
  13. OPSUMIT [Concomitant]
     Active Substance: MACITENTAN
  14. METOPROLOL SUCCINATE [Concomitant]
     Active Substance: METOPROLOL SUCCINATE
  15. OFEV [Concomitant]
     Active Substance: NINTEDANIB
  16. OXYGEN [Concomitant]
     Active Substance: OXYGEN
  17. ASPIRIN [Concomitant]
     Active Substance: ASPIRIN
  18. METFORMIN HYDROCHLORIDE [Concomitant]
     Active Substance: METFORMIN HYDROCHLORIDE

REACTIONS (1)
  - Feeling abnormal [Unknown]
